FAERS Safety Report 9688421 (Version 1)
Quarter: 2013Q4

REPORT INFORMATION
  Report Type: Spontaneous
  Country: US (occurrence: None)
  Receive Date: 20131112
  Receipt Date: 20131112
  Transmission Date: 20140711
  Serious: Yes (Other)
  Sender: FDA-Public Use
  Company Number: 2013-136526

PATIENT
  Age: 68 Year
  Sex: Female
  Weight: 67 kg

DRUGS (1)
  1. ONE A DAY WOMEN^S 50+ HEALTHY ADVANTAGE [Suspect]
     Route: 048
     Dates: start: 201311

REACTIONS (1)
  - Choking [None]
